FAERS Safety Report 22377097 (Version 1)
Quarter: 2023Q2

REPORT INFORMATION
  Report Type: Spontaneous
  Country: US (occurrence: None)
  Receive Date: 20230529
  Receipt Date: 20230529
  Transmission Date: 20230722
  Serious: No
  Sender: FDA-Public Use
  Company Number: 2023A120641

PATIENT

DRUGS (2)
  1. FASLODEX [Suspect]
     Active Substance: FULVESTRANT
     Route: 030
  2. KISQALI [Suspect]
     Active Substance: RIBOCICLIB
     Route: 048

REACTIONS (2)
  - Vision blurred [Unknown]
  - Headache [Unknown]
